FAERS Safety Report 10955502 (Version 1)
Quarter: 2015Q1

REPORT INFORMATION
  Report Type: Spontaneous
  Country: US (occurrence: None)
  Receive Date: 20150325
  Receipt Date: 20150325
  Transmission Date: 20150721
  Serious: Yes (Other)
  Sender: FDA-Public Use
  Company Number: None

PATIENT
  Age: 46 Year
  Sex: Male

DRUGS (6)
  1. PEGASYS [Concomitant]
     Active Substance: PEGINTERFERON ALFA-2A
  2. ADVIL [Concomitant]
     Active Substance: IBUPROFEN
  3. NORCO [Concomitant]
     Active Substance: ACETAMINOPHEN\HYDROCODONE BITARTRATE
  4. SOVALDI [Suspect]
     Active Substance: SOFOSBUVIR
     Indication: CHRONIC HEPATITIS C
     Route: 048
     Dates: start: 20150219
  5. RIBAVIRIN. [Concomitant]
     Active Substance: RIBAVIRIN
  6. DILTIAZEM [Concomitant]
     Active Substance: DILTIAZEM

REACTIONS (1)
  - Headache [None]
